FAERS Safety Report 7686290-0 (Version None)
Quarter: 2011Q3

REPORT INFORMATION
  Report Type: 
  Country: None (occurrence: None)
  Receive Date: 20110816
  Receipt Date: 20110411
  Transmission Date: 20111222
  Serious: No
  Sender: FDA-Public Use
  Company Number: US-GLAXOSMITHKLINE-A0922401A

PATIENT
  Age: 73 Year
  Sex: Male

DRUGS (1)
  1. TAGAMET [Suspect]
     Route: 048

REACTIONS (1)
  - BREAST ENLARGEMENT [None]
